FAERS Safety Report 11216551 (Version 1)
Quarter: 2015Q2

REPORT INFORMATION
  Report Type: Spontaneous
  Country: US (occurrence: None)
  Receive Date: 20150623
  Receipt Date: 20150623
  Transmission Date: 20150821
  Serious: No
  Sender: FDA-Public Use
  Company Number: None

PATIENT
  Age: 57 Year
  Sex: Male
  Weight: 108.86 kg

DRUGS (10)
  1. CIPROFLOXACIN 500 MG DR. REDDY^S LAB [Suspect]
     Active Substance: CIPROFLOXACIN
     Indication: URINARY TRACT INFECTION
     Route: 048
     Dates: start: 20150616, end: 20150622
  2. PRIMIDONE. [Concomitant]
     Active Substance: PRIMIDONE
  3. GABAPENTIN. [Concomitant]
     Active Substance: GABAPENTIN
  4. PHOSLO [Concomitant]
     Active Substance: CALCIUM ACETATE
  5. ALLERGY MEDICATION [Concomitant]
     Active Substance: DIPHENHYDRAMINE HYDROCHLORIDE
  6. SENSIPAR [Concomitant]
     Active Substance: CINACALCET HYDROCHLORIDE
  7. LASIX [Concomitant]
     Active Substance: FUROSEMIDE
  8. FOSRENOL [Concomitant]
     Active Substance: LANTHANUM CARBONATE
  9. LOW DOSE ASA [Concomitant]
  10. VITAMIN B12 [Concomitant]
     Active Substance: CYANOCOBALAMIN

REACTIONS (3)
  - Urinary tract infection [None]
  - Product quality issue [None]
  - Drug ineffective [None]

NARRATIVE: CASE EVENT DATE: 20150622
